FAERS Safety Report 7659650-1 (Version None)
Quarter: 2011Q3

REPORT INFORMATION
  Report Type: 
  Country: None (occurrence: None)
  Receive Date: 20110805
  Receipt Date: 20110727
  Transmission Date: 20111222
  Serious: Yes (Life-Threatening, Other)
  Sender: FDA-Public Use
  Company Number: FR-CEPHALON-2011003984

PATIENT
  Sex: Female

DRUGS (1)
  1. TRISENOX [Suspect]
     Indication: ACUTE PROMYELOCYTIC LEUKAEMIA
     Route: 041
     Dates: start: 20100507, end: 20100525

REACTIONS (9)
  - MALAISE [None]
  - HYPERKALAEMIA [None]
  - OVERDOSE [None]
  - MOVEMENT DISORDER [None]
  - HYPOTENSION [None]
  - ELECTROCARDIOGRAM QT PROLONGED [None]
  - CONVULSION [None]
  - DISTURBANCE IN ATTENTION [None]
  - SYNCOPE [None]
